FAERS Safety Report 8611945-0 (Version None)
Quarter: 2012Q3

REPORT INFORMATION
  Report Type: 
  Country: None (occurrence: None)
  Receive Date: 20120822
  Receipt Date: 20120816
  Transmission Date: 20120928
  Serious: Yes (Life-Threatening)
  Sender: FDA-Public Use
  Company Number: FR-PFIZER INC-2012200313

PATIENT
  Age: 82 Year
  Sex: Male

DRUGS (1)
  1. AXITINIB [Suspect]
     Dosage: 5 MG, 2X/DAY
     Route: 048
     Dates: start: 20120413, end: 20120703

REACTIONS (1)
  - CANDIDIASIS [None]
